FAERS Safety Report 6504789-7 (Version None)
Quarter: 2009Q4

REPORT INFORMATION
  Report Type: 
  Country: None (occurrence: None)
  Receive Date: 20091216
  Receipt Date: 20091204
  Transmission Date: 20100525
  Serious: No
  Sender: FDA-Public Use
  Company Number: 2009SP031766

PATIENT
  Age: 57 Year
  Sex: Female
  Weight: 56 kg

DRUGS (4)
  1. REMERON [Suspect]
     Indication: DEPRESSION
     Dosage: 15 MG; QD; PO
     Route: 048
     Dates: start: 20091007, end: 20091007
  2. REMERON [Suspect]
     Indication: INSOMNIA
     Dosage: 15 MG; QD; PO
     Route: 048
     Dates: start: 20091007, end: 20091007
  3. LIVALO (CON.) [Concomitant]
  4. ALOSENN (CON.) [Concomitant]

REACTIONS (1)
  - PALPITATIONS [None]
